FAERS Safety Report 8332893-X (Version None)
Quarter: 2012Q1

REPORT INFORMATION
  Report Type: 
  Country: None (occurrence: None)
  Receive Date: 20120327
  Receipt Date: 20110321
  Transmission Date: 20120608
  Serious: Yes (Other)
  Sender: FDA-Public Use
  Company Number: PHHY2010US12108

PATIENT
  Age: 58 Year
  Sex: Female

DRUGS (6)
  1. ASPIRIN [Concomitant]
  2. AMBIEN [Concomitant]
  3. LEXAPRO [Concomitant]
  4. GLEEVEC [Suspect]
     Indication: CHRONIC MYELOID LEUKAEMIA
     Dosage: 400 MG DAILY, ORAL, 300 MG DAILY, ORAL
     Route: 048
     Dates: start: 20090307, end: 20110210
  5. GLEEVEC [Suspect]
     Indication: CHRONIC MYELOID LEUKAEMIA
     Dosage: 400 MG DAILY, ORAL, 300 MG DAILY, ORAL
     Route: 048
     Dates: start: 20110314
  6. SPRYCEL [Concomitant]

REACTIONS (8)
  - VOMITING [None]
  - PAIN [None]
  - HEADACHE [None]
  - ARTHRALGIA [None]
  - DIARRHOEA [None]
  - DEPRESSION [None]
  - FATIGUE [None]
  - NAUSEA [None]
